FAERS Safety Report 4395423-3 (Version None)
Quarter: 2004Q3

REPORT INFORMATION
  Report Type: 
  Country: None (occurrence: None)
  Receive Date: 20040707
  Receipt Date: 20040624
  Transmission Date: 20050211
  Serious: Yes (Hospitalization)
  Sender: FDA-Public Use
  Company Number: 04P-087-0264724-00

PATIENT
  Age: 58 Year
  Sex: Female

DRUGS (6)
  1. OMNICEF [Suspect]
     Indication: DRUG USE FOR UNKNOWN INDICATION
     Dosage: 300 MG, 1 IN 1 D, PER ORAL
     Route: 048
     Dates: end: 20040601
  2. TICLOPIDINE HCL [Suspect]
     Indication: DRUG USE FOR UNKNOWN INDICATION
  3. CEFPODOXIME PROXETIL [Concomitant]
  4. LOXOPROFEN SODIUM [Concomitant]
  5. TEPRENONE [Concomitant]
  6. STRONG NEO-MINOPHAGEN C [Concomitant]

REACTIONS (1)
  - AGRANULOCYTOSIS [None]
